FAERS Safety Report 4897065-X (Version None)
Quarter: 2006Q1

REPORT INFORMATION
  Report Type: 
  Country: None (occurrence: None)
  Receive Date: 20060127
  Receipt Date: 20060111
  Transmission Date: 20060701
  Serious: Yes (Disabling)
  Sender: FDA-Public Use
  Company Number: 8014112

PATIENT
  Age: 14 Year
  Sex: Female

DRUGS (5)
  1. KEPPRA [Suspect]
     Indication: MYOCLONUS
     Dosage: 250 MG 2/D PO
     Route: 048
     Dates: start: 20041101
  2. HYDROCORTISONE [Concomitant]
  3. MINIRIN [Concomitant]
  4. LEVOTHYROX [Concomitant]
  5. CREON [Concomitant]

REACTIONS (8)
  - ABDOMINAL PAIN [None]
  - ANAEMIA [None]
  - CYTOLYTIC HEPATITIS [None]
  - DIARRHOEA [None]
  - HYPONATRAEMIA [None]
  - LEUKOPENIA [None]
  - THROMBOCYTOPENIA [None]
  - VOMITING [None]
